FAERS Safety Report 8105109-7 (Version None)
Quarter: 2012Q1

REPORT INFORMATION
  Report Type: 
  Country: None (occurrence: None)
  Receive Date: 20120201
  Receipt Date: 20120123
  Transmission Date: 20120608
  Serious: Yes (Hospitalization)
  Sender: FDA-Public Use
  Company Number: ES-PFIZER INC-2009210486

PATIENT
  Age: 68 Year
  Sex: Male

DRUGS (6)
  1. OMEPRAZOLE [Concomitant]
     Dosage: UNK
     Dates: start: 20080808
  2. SUNITINIB MALATE [Suspect]
     Indication: PROSTATE CANCER
     Dosage: 37.5 MG, 1X/DAY
     Route: 048
     Dates: start: 20090303, end: 20090429
  3. PREDNISONE TAB [Suspect]
     Indication: PROSTATE CANCER
     Dosage: 5 MG, 2X/DAY
     Route: 048
     Dates: start: 20090303, end: 20090429
  4. ATACAND [Concomitant]
     Dosage: UNK
     Dates: start: 20080808
  5. LEUPROLIDE ACETATE [Concomitant]
     Dosage: UNK
     Dates: start: 20080808
  6. ACETAMINOPHEN [Concomitant]
     Dosage: UNK
     Dates: start: 20080808

REACTIONS (10)
  - STAPHYLOCOCCAL INFECTION [None]
  - ANAEMIA [None]
  - PLEURAL EFFUSION [None]
  - NEUTROPENIA [None]
  - GASTROINTESTINAL HAEMORRHAGE [None]
  - HYPOALBUMINAEMIA [None]
  - VOMITING [None]
  - DIARRHOEA [None]
  - TOXICITY TO VARIOUS AGENTS [None]
  - HYPOTHYROIDISM [None]
